FAERS Safety Report 13904831 (Version 1)
Quarter: 2017Q3

REPORT INFORMATION
  Report Type: Spontaneous
  Country: US (occurrence: US)
  Receive Date: 20170824
  Receipt Date: 20170824
  Transmission Date: 20171127
  Serious: Yes (Hospitalization)
  Sender: FDA-Public Use
  Company Number: None

PATIENT
  Age: 24 Year
  Sex: Female

DRUGS (7)
  1. TRAMADOL. [Concomitant]
     Active Substance: TRAMADOL
  2. CYCLOBENZAPRINE. [Concomitant]
     Active Substance: CYCLOBENZAPRINE
  3. IBUPROFEN. [Concomitant]
     Active Substance: IBUPROFEN
  4. BENZONATATE. [Concomitant]
     Active Substance: BENZONATATE
  5. METAXALONE. [Concomitant]
     Active Substance: METAXALONE
  6. ENBREL [Suspect]
     Active Substance: ETANERCEPT
     Indication: RHEUMATOID ARTHRITIS
     Dosage: ?          OTHER FREQUENCY:EVERY WEEK;?
     Route: 058
     Dates: start: 20170201, end: 20170731
  7. OSELTAMIVAR PHOSPHATE [Concomitant]
     Active Substance: OSELTAMIVIR PHOSPHATE

REACTIONS (2)
  - Pain [None]
  - Paraesthesia [None]

NARRATIVE: CASE EVENT DATE: 20170812
